FAERS Safety Report 16133962 (Version 2)
Quarter: 2019Q3

REPORT INFORMATION
  Report Type: Spontaneous
  Country: US (occurrence: US)
  Receive Date: 20190329
  Receipt Date: 20190923
  Transmission Date: 20191004
  Serious: No
  Sender: FDA-Public Use
  Company Number: US-MYLANLABS-2019M1020683

PATIENT
  Age: 67 Year
  Sex: Female

DRUGS (3)
  1. LISINOPRIL                         /00894002/ [Concomitant]
     Active Substance: LISINOPRIL
     Dosage: TOOK FOR EVERY 4-6 HOURS AS NEEDED
  2. FENTANYL. [Suspect]
     Active Substance: FENTANYL
     Indication: PAIN
     Dosage: UNK
     Route: 062
  3. OXYCODONE [Concomitant]
     Active Substance: OXYCODONE
     Dosage: TOOK FOR EVERY 4-6 HOURS AS NEEDED

REACTIONS (2)
  - Fall [Recovered/Resolved]
  - Product adhesion issue [Unknown]

NARRATIVE: CASE EVENT DATE: 20190228
